FAERS Safety Report 15067793 (Version 1)
Quarter: 2018Q2

REPORT INFORMATION
  Report Type: Spontaneous
  Country: US (occurrence: US)
  Receive Date: 20180626
  Receipt Date: 20180626
  Transmission Date: 20180711
  Serious: No
  Sender: FDA-Public Use
  Company Number: US-SA-2018SA107554

PATIENT
  Age: 69 Year
  Sex: Male

DRUGS (2)
  1. AMBIEN [Suspect]
     Active Substance: ZOLPIDEM TARTRATE
     Dosage: UNK UNK,UNK
     Route: 048
  2. ULTRAM [TRAMADOL HYDROCHLORIDE] [Concomitant]
     Indication: PAIN
     Dosage: 1 DF,PRN

REACTIONS (1)
  - Drug hypersensitivity [Unknown]
